FAERS Safety Report 17209945 (Version 1)
Quarter: 2019Q4

REPORT INFORMATION
  Report Type: Spontaneous
  Country: TW (occurrence: TW)
  Receive Date: 20191227
  Receipt Date: 20191227
  Transmission Date: 20200122
  Serious: Yes (Hospitalization)
  Sender: FDA-Public Use
  Company Number: TW-BAUSCH-BL-2019-065819

PATIENT
  Age: 32 Year
  Sex: Male

DRUGS (15)
  1. ABACAVIR/DOLUTEGRAVIR/LAMIVUDINE [Concomitant]
     Active Substance: ABACAVIR SULFATE\DOLUTEGRAVIR SODIUM\LAMIVUDINE
     Dosage: RESUMED POST-OPERATIVELY
  2. IMIPENEM [Concomitant]
     Active Substance: IMIPENEM
     Indication: MYCOBACTERIUM AVIUM COMPLEX INFECTION
     Dosage: STARTED ON 12TH HOSPITAL DAY WHEN MAC WAS ISOLATED FROM CULTURES OF SPUTUM, BLOOD, COLON SPECIMENS
  3. ETHAMBUTOL [Concomitant]
     Active Substance: ETHAMBUTOL HYDROCHLORIDE
     Indication: MYCOBACTERIUM AVIUM COMPLEX INFECTION
     Dosage: STARTED ON 12TH HOSPITAL DAY WHEN MAC WAS ISOLATED FROM CULTURES OF SPUTUM, BLOOD, COLON SPECIMENS
  4. VALGANCICLOVIR. [Concomitant]
     Active Substance: VALGANCICLOVIR
     Indication: CYTOMEGALOVIRUS COLITIS
  5. CLARITHROMYCIN. [Concomitant]
     Active Substance: CLARITHROMYCIN
     Indication: MYCOBACTERIUM AVIUM COMPLEX INFECTION
     Dosage: STARTED ON 12TH HOSPITAL DAY WHEN MAC WAS ISOLATED FROM CULTURES OF SPUTUM, BLOOD, COLON SPECIMENS
  6. ABACAVIR/DOLUTEGRAVIR/LAMIVUDINE [Concomitant]
     Active Substance: ABACAVIR SULFATE\DOLUTEGRAVIR SODIUM\LAMIVUDINE
     Indication: ANTIRETROVIRAL THERAPY
     Dosage: .
  7. GANCICLOVIR. [Concomitant]
     Active Substance: GANCICLOVIR
     Indication: CYTOMEGALOVIRUS COLITIS
  8. AMIKACIN. [Concomitant]
     Active Substance: AMIKACIN
     Dosage: RESUMED POST-OPERATIVELY
  9. AMIKACIN. [Concomitant]
     Active Substance: AMIKACIN
     Indication: MYCOBACTERIUM AVIUM COMPLEX INFECTION
     Dosage: STARTED ON 12TH HOSPITAL DAY WHEN MAC WAS ISOLATED FROM CULTURES OF SPUTUM, BLOOD, COLON SPECIMENS
  10. ETHAMBUTOL [Concomitant]
     Active Substance: ETHAMBUTOL HYDROCHLORIDE
     Dosage: RESUMED POST-OPERATIVELY
  11. PREDNISOLONE. [Suspect]
     Active Substance: PREDNISOLONE
     Indication: IMMUNE RECONSTITUTION INFLAMMATORY SYNDROME
     Dosage: ON THE 31ST HOSPITAL DAY
     Route: 065
  12. GANCICLOVIR. [Concomitant]
     Active Substance: GANCICLOVIR
     Indication: CYTOMEGALOVIRUS GASTROENTERITIS
     Dosage: 4TH HOSPITAL DAY
     Route: 042
  13. VALGANCICLOVIR. [Concomitant]
     Active Substance: VALGANCICLOVIR
     Indication: CYTOMEGALOVIRUS GASTROENTERITIS
     Dosage: 4TH HOSPITAL DAY
     Route: 048
  14. IMIPENEM [Concomitant]
     Active Substance: IMIPENEM
     Dosage: RESUMED POST-OPERATIVELY
  15. CLARITHROMYCIN. [Concomitant]
     Active Substance: CLARITHROMYCIN
     Dosage: RESUMED POST-OPERATIVELY

REACTIONS (1)
  - Intestinal perforation [Recovered/Resolved]
